FAERS Safety Report 10143759 (Version 1)
Quarter: 2014Q2

REPORT INFORMATION
  Report Type: Spontaneous
  Country: US (occurrence: US)
  Receive Date: 20140430
  Receipt Date: 20140430
  Transmission Date: 20141212
  Serious: Yes (Other)
  Sender: FDA-Public Use
  Company Number: US-RB-065453-14

PATIENT
  Age: 57 Year
  Sex: Female

DRUGS (3)
  1. MUCINEX MAXIMUM STRENGTH [Suspect]
     Indication: PRODUCT USED FOR UNKNOWN INDICATION
     Dosage: 1 TABLET EVERY 12 HOURS
     Route: 048
     Dates: start: 20140422
  2. AUGMENTIN [Concomitant]
     Indication: SINUSITIS
  3. Z-PACK [Concomitant]
     Indication: SINUSITIS

REACTIONS (2)
  - Lymphadenopathy [Not Recovered/Not Resolved]
  - Oropharyngeal pain [Not Recovered/Not Resolved]
